FAERS Safety Report 6985891-2 (Version None)
Quarter: 2010Q3

REPORT INFORMATION
  Report Type: 
  Country: None (occurrence: None)
  Receive Date: 20100915
  Receipt Date: 20100910
  Transmission Date: 20110219
  Serious: Yes (Hospitalization)
  Sender: FDA-Public Use
  Company Number: BR-BAXTER-2010BH005585

PATIENT
  Age: 7 Year
  Sex: Male
  Weight: 18 kg

DRUGS (2)
  1. DIANEAL [Suspect]
     Indication: PERITONEAL DIALYSIS
     Route: 033
     Dates: start: 20100210, end: 20100201
  2. DIANEAL [Suspect]
     Route: 033
     Dates: start: 20100101

REACTIONS (4)
  - ABDOMINAL DISTENSION [None]
  - HYPERHIDROSIS [None]
  - OVERDOSE [None]
  - OXYGEN SATURATION DECREASED [None]
